FAERS Safety Report 7632300-6 (Version None)
Quarter: 2011Q3

REPORT INFORMATION
  Report Type: 
  Country: None (occurrence: None)
  Receive Date: 20110725
  Receipt Date: 20101105
  Transmission Date: 20111222
  Serious: Yes (Other)
  Sender: FDA-Public Use
  Company Number: US-BRISTOL-MYERS SQUIBB COMPANY-15203102

PATIENT
  Age: 64 Year
  Sex: Male
  Weight: 77 kg

DRUGS (2)
  1. VITAMIN TAB [Concomitant]
  2. COUMADIN [Suspect]
     Indication: AORTIC VALVE REPLACEMENT
     Dosage: TAKING 9MG(5MG+4MG), INCREASED TO 10MG,THEN AGAIN TO 2X5MG ONCE A DAY. STARTED ON 5JUL10
     Dates: start: 20050101

REACTIONS (2)
  - INTERNATIONAL NORMALISED RATIO DECREASED [None]
  - OSTEOPOROSIS [None]
